FAERS Safety Report 5699445-1 (Version None)
Quarter: 2008Q2

REPORT INFORMATION
  Report Type: 
  Country: None (occurrence: None)
  Receive Date: 20080407
  Receipt Date: 20080407
  Transmission Date: 20081010
  Serious: No
  Sender: FDA-Public Use
  Company Number: None

PATIENT
  Sex: Male
  Weight: 90.7194 kg

DRUGS (1)
  1. FORTAMET [Suspect]
     Dosage: 1000MG ONE DAILY ORAL
     Route: 048
     Dates: start: 20071207

REACTIONS (1)
  - DIARRHOEA [None]
